FAERS Safety Report 21479084 (Version 8)
Quarter: 2023Q4

REPORT INFORMATION
  Report Type: Report from Study
  Country: KW (occurrence: KW)
  Receive Date: 20221019
  Receipt Date: 20231024
  Transmission Date: 20240110
  Serious: Yes (Hospitalization)
  Sender: FDA-Public Use
  Company Number: KW-JNJFOC-20221031512

PATIENT
  Age: 16 Year
  Sex: Female
  Weight: 37 kg

DRUGS (5)
  1. REMICADE [Suspect]
     Active Substance: INFLIXIMAB
     Indication: Colitis ulcerative
     Route: 041
     Dates: start: 20220410, end: 20230528
  2. REMICADE [Suspect]
     Active Substance: INFLIXIMAB
     Route: 041
     Dates: start: 20220410, end: 20230528
  3. REMICADE [Suspect]
     Active Substance: INFLIXIMAB
     Route: 041
  4. REMICADE [Suspect]
     Active Substance: INFLIXIMAB
     Route: 041
  5. REMICADE [Suspect]
     Active Substance: INFLIXIMAB
     Route: 041

REACTIONS (6)
  - Colitis ulcerative [Not Recovered/Not Resolved]
  - Product availability issue [Unknown]
  - Weight increased [Unknown]
  - Drug level decreased [Unknown]
  - Drug ineffective [Unknown]
  - Off label use [Unknown]
